FAERS Safety Report 9771203 (Version 2)
Quarter: 2014Q1

REPORT INFORMATION
  Report Type: Spontaneous
  Country: US (occurrence: US)
  Receive Date: 20131218
  Receipt Date: 20140109
  Transmission Date: 20141002
  Serious: No
  Sender: FDA-Public Use
  Company Number: US-PFIZER INC-2013357545

PATIENT
  Age: 58 Year
  Sex: Male
  Weight: 72.56 kg

DRUGS (17)
  1. VIAGRA [Suspect]
     Indication: SEXUAL DYSFUNCTION
     Dosage: 100 MG, DAILY AS NEEDED (1 TAB BY MOUTH 1 TIME DAILY AS NEEDED)
     Route: 048
     Dates: start: 20090413
  2. VIAGRA [Suspect]
     Dosage: UNK
     Route: 048
     Dates: start: 2013, end: 2013
  3. BUSPAR [Concomitant]
     Indication: BIPOLAR I DISORDER
     Dosage: 10 MG, 2X/DAY
     Route: 048
     Dates: start: 20131114
  4. COGENTIN [Concomitant]
     Dosage: 1 MG, 2X/DAY
     Route: 048
     Dates: start: 20131114
  5. LORAZEPAM [Concomitant]
     Indication: ANXIETY
     Dosage: 2 MG, 3X/DAY
     Dates: start: 20131114
  6. LAMICTAL [Concomitant]
     Dosage: 150 MG, 2X/DAY
     Route: 048
     Dates: start: 20131114
  7. VISTARIL [Concomitant]
     Indication: ANXIETY
     Dosage: 50 MG CAPSULE, 1 CAPSULE BY MOUTH 3 TIMES DAILY AS NEEDED
     Route: 048
     Dates: start: 20131114
  8. WELLBUTRIN [Concomitant]
     Dosage: 200 MG, 2X/DAY
     Route: 048
     Dates: start: 20131114
  9. COREG [Concomitant]
     Dosage: 25 MG, 2X/DAY
     Route: 048
     Dates: start: 20131114
  10. MINIPRESS [Concomitant]
     Dosage: 1 MG, DAILY (AT BEDTIME)
     Route: 048
     Dates: start: 20131114
  11. SEROQUEL [Concomitant]
     Indication: BIPOLAR DISORDER
     Dosage: 400 MG, 2X/DAY
     Dates: start: 20130819
  12. SYMBICORT [Concomitant]
     Dosage: UNK,2X/DAY(160-4.5 MCG/ACTUATION INHALATION HFAA) TAKE 2 PUFF BY INHALATION 2 TIMES DAILY 3 INHALER)
     Dates: start: 20130701
  13. PROVENTIL INHALER [Concomitant]
     Indication: DYSPNOEA
     Dosage: UNK 2.5 MG/3 ML (0.083 %)  (TAKE 3 ML BY INHALATION EVERY 4 HOURS AS NEEDED)
     Route: 055
     Dates: start: 20120808
  14. PROVENTIL INHALER [Concomitant]
     Dosage: UNK (90 MCG/ACTUATION) (TAKE 2 PUFFS BY INHALATION EVERY 6 HOURS AS NEEDED)
     Route: 055
     Dates: start: 20120808
  15. VENTOLIN [Concomitant]
     Indication: DYSPNOEA
     Dosage: UNK 2.5 MG/3 ML (0.083 %)  TAKE 3 ML BY INHALATION EVERY 4 HOURS AS NEEDED)
     Route: 055
     Dates: start: 20120808
  16. VENTOLIN [Concomitant]
     Dosage: UNK (90 MCG/ACTUATION) (TAKE 2 PUFFS BY INHALATION EVERY 6 HOURS AS NEEDED)
     Route: 055
     Dates: start: 20120808
  17. ATIVAN [Concomitant]
     Dosage: 2 MG, 3X/DAY
     Route: 048
     Dates: start: 20131114

REACTIONS (1)
  - Energy increased [Unknown]
